FAERS Safety Report 16385256 (Version 3)
Quarter: 2019Q3

REPORT INFORMATION
  Report Type: Report from Study
  Country: UA (occurrence: UA)
  Receive Date: 20190603
  Receipt Date: 20190702
  Transmission Date: 20191004
  Serious: Yes (Hospitalization)
  Sender: FDA-Public Use
  Company Number: UA-BAYER-2019-101217

PATIENT
  Sex: Male
  Weight: 82 kg

DRUGS (21)
  1. COPANLISIB. [Suspect]
     Active Substance: COPANLISIB
     Indication: NON-HODGKIN^S LYMPHOMA RECURRENT
     Dosage: 30 MG
     Route: 042
     Dates: start: 20190410, end: 20190410
  2. COPANLISIB. [Suspect]
     Active Substance: COPANLISIB
     Indication: NON-HODGKIN^S LYMPHOMA RECURRENT
     Dosage: 60 MG
     Route: 042
     Dates: start: 20190417, end: 20190417
  3. RITUXIMAB. [Suspect]
     Active Substance: RITUXIMAB
     Indication: NON-HODGKIN^S LYMPHOMA RECURRENT
     Dosage: 729 MG EVERY 4 WEEKS FOR 6 CYCLES
     Route: 042
     Dates: start: 20190410, end: 20190410
  4. BENDAMUSTINE [Suspect]
     Active Substance: BENDAMUSTINE
     Indication: NON-HODGKIN^S LYMPHOMA RECURRENT
     Dosage: 175 MG EVERY 4 WEEKS FOR 6 CYCLES
     Dates: start: 20190411, end: 20190411
  5. RITUXIMAB. [Suspect]
     Active Substance: RITUXIMAB
     Indication: NON-HODGKIN^S LYMPHOMA RECURRENT
     Dosage: 750 MG EVERY 4 WEEKS FOR 6 CYCLES
     Route: 042
     Dates: start: 20190508, end: 20190508
  6. RITUXIMAB. [Suspect]
     Active Substance: RITUXIMAB
     Indication: NON-HODGKIN^S LYMPHOMA RECURRENT
     Dosage: 325 MG EVERY 4 WEEKS FOR 6 CYCLES
     Route: 042
     Dates: start: 20190605, end: 20190605
  7. BENDAMUSTINE [Suspect]
     Active Substance: BENDAMUSTINE
     Indication: NON-HODGKIN^S LYMPHOMA RECURRENT
     Dosage: 175 MG EVERY 4 WEEKS FOR 6 CYCLES
     Dates: start: 20190410, end: 20190410
  8. NIFEDIPIN [Concomitant]
     Active Substance: NIFEDIPINE
     Indication: HYPERTENSION
     Dosage: 2 MG, ONCE
     Route: 048
     Dates: start: 20190508, end: 20190508
  9. FEXOFENADINE [Concomitant]
     Active Substance: FEXOFENADINE HYDROCHLORIDE
     Indication: DERMATITIS ALLERGIC
     Dosage: 120 MG, QD
     Route: 048
     Dates: start: 20190511, end: 20190522
  10. COPANLISIB. [Suspect]
     Active Substance: COPANLISIB
     Indication: NON-HODGKIN^S LYMPHOMA RECURRENT
     Dosage: 60 MG
     Route: 042
     Dates: start: 20190424, end: 20190424
  11. BENDAMUSTINE [Suspect]
     Active Substance: BENDAMUSTINE
     Indication: NON-HODGKIN^S LYMPHOMA RECURRENT
     Dosage: 90 MG EVERY 4 WEEKS FOR 6 CYCLES
     Dates: start: 20190606, end: 20190606
  12. COPANLISIB. [Suspect]
     Active Substance: COPANLISIB
     Indication: NON-HODGKIN^S LYMPHOMA RECURRENT
     Dosage: 60 MG
     Route: 042
     Dates: start: 20190508, end: 20190508
  13. BENDAMUSTINE [Suspect]
     Active Substance: BENDAMUSTINE
     Indication: NON-HODGKIN^S LYMPHOMA RECURRENT
     Dosage: 90 MG EVERY 4 WEEKS FOR 6 CYCLES
     Dates: start: 20190411, end: 20190411
  14. NIFEDIPIN [Concomitant]
     Active Substance: NIFEDIPINE
     Indication: HYPERTENSION
  15. COPANLISIB. [Suspect]
     Active Substance: COPANLISIB
     Indication: NON-HODGKIN^S LYMPHOMA RECURRENT
     Dosage: 45 MG
     Dates: start: 20190605, end: 20190605
  16. PREDNISOLONE. [Concomitant]
     Active Substance: PREDNISOLONE
     Indication: DERMATITIS ALLERGIC
     Dosage: 30 MG, QD
     Route: 042
     Dates: start: 20190515, end: 20190517
  17. BENDAMUSTINE [Suspect]
     Active Substance: BENDAMUSTINE
     Indication: NON-HODGKIN^S LYMPHOMA RECURRENT
     Dosage: 180 MG EVERY 4 WEEKS FOR 6 CYCLES
     Dates: start: 20190411, end: 20190411
  18. BENDAMUSTINE [Suspect]
     Active Substance: BENDAMUSTINE
     Indication: NON-HODGKIN^S LYMPHOMA RECURRENT
     Dosage: 90 MG EVERY 4 WEEKS FOR 6 CYCLES
     Dates: start: 20190605, end: 20190605
  19. ENALAPRIL [Concomitant]
     Active Substance: ENALAPRIL
     Indication: ESSENTIAL HYPERTENSION
     Dosage: 10 MG, BID
     Route: 048
     Dates: start: 20170904
  20. VEROSPIRON [Concomitant]
     Active Substance: SPIRONOLACTONE
     Indication: CARDIOVASCULAR EVENT PROPHYLAXIS
     Dosage: 50 MG, QD
     Route: 048
     Dates: start: 20190326
  21. ALLOPURINOL. [Concomitant]
     Active Substance: ALLOPURINOL
     Indication: NEOPLASM PROPHYLAXIS
     Dosage: UNK
     Route: 048
     Dates: start: 20190410

REACTIONS (1)
  - Eczema [Recovered/Resolved]

NARRATIVE: CASE EVENT DATE: 20190522
